FAERS Safety Report 7744142-1 (Version None)
Quarter: 2011Q3

REPORT INFORMATION
  Report Type: 
  Country: None (occurrence: None)
  Receive Date: 20110831
  Receipt Date: 20110824
  Transmission Date: 20111222
  Serious: Yes (Other)
  Sender: FDA-Public Use
  Company Number: 2011SP037160

PATIENT
  Age: 31 Year
  Sex: Female
  Weight: 60 kg

DRUGS (1)
  1. NUVARING [Suspect]
     Indication: CONTRACEPTION
     Dosage: VAG
     Route: 067
     Dates: start: 20110601

REACTIONS (3)
  - URINARY TRACT INFECTION [None]
  - HYPOTHYROIDISM [None]
  - INAPPROPRIATE SCHEDULE OF DRUG ADMINISTRATION [None]
